FAERS Safety Report 19035792 (Version 1)
Quarter: 2021Q1

REPORT INFORMATION
  Report Type: Spontaneous
  Country: BE (occurrence: BE)
  Receive Date: 20210321
  Receipt Date: 20210321
  Transmission Date: 20210420
  Serious: Yes (Disabling)
  Sender: FDA-Public Use
  Company Number: BE-TEVA-2021-BE-1891192

PATIENT
  Age: 57 Year
  Sex: Female
  Weight: 62 kg

DRUGS (9)
  1. ATORVASTATINE TEVA 20 MG [Suspect]
     Active Substance: ATORVASTATIN CALCIUM
     Indication: HYPERCHOLESTEROLAEMIA
     Dosage: 1DF
     Route: 048
     Dates: start: 20210215
  2. ATORVASTATINE EG 20 MG COMPRIME PELLICULE [Suspect]
     Active Substance: ATORVASTATIN CALCIUM
     Indication: HYPERCHOLESTEROLAEMIA
     Dosage: NO. SERIES 1G3C0AWU26,1DF
     Route: 048
     Dates: start: 20210201, end: 20210201
  3. SEEBRI BREEZHALER [Concomitant]
     Active Substance: GLYCOPYRROLATE
  4. KEYTRUDA [Concomitant]
     Active Substance: PEMBROLIZUMAB
  5. MEDROL [Concomitant]
     Active Substance: METHYLPREDNISOLONE
  6. LORAMET [Concomitant]
     Active Substance: LORMETAZEPAM
  7. ALPRAZOLAM. [Concomitant]
     Active Substance: ALPRAZOLAM
  8. PEMETREXED. [Concomitant]
     Active Substance: PEMETREXED
  9. PANTOMED [Concomitant]

REACTIONS (3)
  - Hypotension [Recovered/Resolved]
  - General physical health deterioration [Recovered/Resolved]
  - Vertigo [Recovered/Resolved]
